FAERS Safety Report 10897099 (Version 1)
Quarter: 2015Q1

REPORT INFORMATION
  Report Type: Spontaneous
  Country: US (occurrence: US)
  Receive Date: 20150309
  Receipt Date: 20150309
  Transmission Date: 20150721
  Serious: No
  Sender: FDA-Public Use
  Company Number: US-PFIZER INC-2015081597

PATIENT
  Age: 32 Year
  Sex: Female

DRUGS (2)
  1. ADVIL CONGESTION RELIEF [Suspect]
     Active Substance: IBUPROFEN\PHENYLEPHRINE HYDROCHLORIDE
     Indication: NASAL CONGESTION
  2. ADVIL CONGESTION RELIEF [Suspect]
     Active Substance: IBUPROFEN\PHENYLEPHRINE HYDROCHLORIDE
     Indication: PAIN

REACTIONS (1)
  - Drug effect incomplete [Unknown]
